FAERS Safety Report 17635937 (Version 2)
Quarter: 2020Q2

REPORT INFORMATION
  Report Type: Spontaneous
  Country: US (occurrence: US)
  Receive Date: 20200407
  Receipt Date: 20200420
  Transmission Date: 20200713
  Serious: Yes (Life-Threatening, Hospitalization)
  Sender: FDA-Public Use
  Company Number: US-TEVA-2020-US-1218202

PATIENT
  Age: 18 Year
  Sex: Male

DRUGS (3)
  1. DESMOPRESSIN [Suspect]
     Active Substance: DESMOPRESSIN
     Dosage: .3 MILLIGRAM DAILY; 0.1 MG THREE TIMES A DAY
     Route: 048
  2. DESMOPRESSIN [Suspect]
     Active Substance: DESMOPRESSIN
     Indication: DIABETES INSIPIDUS
     Dosage: STARTED AT UNKNOWN DOSAGE
     Route: 065
  3. HEPARIN [Suspect]
     Active Substance: HEPARIN SODIUM
     Indication: CEREBRAL VENOUS SINUS THROMBOSIS
     Route: 042

REACTIONS (4)
  - Hypoxia [Recovering/Resolving]
  - Seizure [Recovering/Resolving]
  - Cerebral venous sinus thrombosis [Recovering/Resolving]
  - Cerebral haemorrhage [Recovering/Resolving]
